FAERS Safety Report 9250680 (Version 1)
Quarter: 2013Q1

REPORT INFORMATION
  Report Type: Spontaneous
  Country: US (occurrence: None)
  Receive Date: 20130305
  Receipt Date: 20130305
  Transmission Date: 20140127
  Serious: Yes (Hospitalization)
  Sender: FDA-Public Use
  Company Number: 163-21880-12082905

PATIENT
  Age: 48 Year
  Sex: Male

DRUGS (5)
  1. REVLIMID [Suspect]
     Indication: MYELODYSPLASTIC SYNDROME
     Dosage: 10 MG, 21 IN 21 D, PO
     Route: 048
     Dates: start: 20120717
  2. PROMETHAZINE HCL ( PROMETHAZINE HYDROCHLORIDE) [Concomitant]
  3. PREDNISONE(PREDNISONE) [Concomitant]
  4. HYDROCODONE-ACETAMINOPHEN(PROCET /USA/) [Concomitant]
  5. CVS SPECTRAVITE(CVS SPECTRAVITE PERFORMANCE) [Concomitant]

REACTIONS (1)
  - Pyrexia [None]
